FAERS Safety Report 9491429 (Version 2)
Quarter: 2013Q1

REPORT INFORMATION
  Report Type: Not Available
  Country: US (occurrence: US)
  Receive Date: 20120619
  Receipt Date: 20120619
  Transmission Date: 20140127
  Serious: Yes (Hospitalization)
  Sender: FDA-Public Use
  Company Number: US-LUNDBECK-DKLU1074692

PATIENT
  Age: 11 None
  Sex: Female
  Weight: 43.5 kg

DRUGS (5)
  1. CLOBAZAM [Suspect]
     Indication: LENNOX-GASTAUT SYNDROME
     Route: 048
     Dates: start: 20080908
  2. CLOBAZAM [Suspect]
     Route: 048
     Dates: start: 20110324
  3. VIMPAT [Concomitant]
     Indication: CONVULSION
     Route: 048
     Dates: start: 20110915
  4. BANZEL [Concomitant]
     Indication: CONVULSION
     Route: 048
     Dates: start: 20110324, end: 20111027
  5. TRAZODONE [Concomitant]
     Indication: ATTENTION DEFICIT/HYPERACTIVITY DISORDER
     Route: 048
     Dates: start: 20110602

REACTIONS (1)
  - Status epilepticus [Recovered/Resolved]
